FAERS Safety Report 24062441 (Version 1)
Quarter: 2024Q3

REPORT INFORMATION
  Report Type: Report from Study
  Country: GB (occurrence: GB)
  Receive Date: 20240708
  Receipt Date: 20240708
  Transmission Date: 20241016
  Serious: Yes (Other)
  Sender: SANDOZ
  Company Number: GB-SANDOZ-SDZ2024GB024081

PATIENT
  Sex: Female

DRUGS (3)
  1. HYRIMOZ [Suspect]
     Active Substance: ADALIMUMAB-ADAZ
     Indication: Psoriasis
     Dosage: 160 MG, HER LAST DOSE WAS TAKEN BACK IN JANUARY TIME, THE INITIAL LOADING DOSE WAS 160MG WHICH WAS X
     Route: 065
  2. HYRIMOZ [Suspect]
     Active Substance: ADALIMUMAB-ADAZ
     Dosage: 40 MG, QW, 40MG/0.8ML SOLUTION FOR INJECTION PRE-FILLED PENS
     Route: 058
  3. HYRIMOZ [Suspect]
     Active Substance: ADALIMUMAB-ADAZ
     Dosage: 40MG/0.4ML SOLUTION FOR INJECTION PRE-FILLED PENS
     Route: 058

REACTIONS (8)
  - Kidney infection [Not Recovered/Not Resolved]
  - Addison^s disease [Unknown]
  - Brain neoplasm [Unknown]
  - Illness [Not Recovered/Not Resolved]
  - Gastrointestinal infection [Not Recovered/Not Resolved]
  - Infection [Unknown]
  - COVID-19 [Unknown]
  - Alopecia [Unknown]
